FAERS Safety Report 16809665 (Version 1)
Quarter: 2019Q4

REPORT INFORMATION
  Report Type: Spontaneous
  Country: US (occurrence: US)
  Receive Date: 20190915
  Receipt Date: 20190915
  Transmission Date: 20200122
  Serious: Yes (Disabling, Other)
  Sender: FDA-Public Use
  Company Number: None

PATIENT
  Age: 32 Year
  Sex: Female

DRUGS (1)
  1. PARAGARD T 380A [Suspect]
     Active Substance: COPPER

REACTIONS (7)
  - Abdominal distension [None]
  - Metrorrhagia [None]
  - Lactation disorder [None]
  - Abdominal pain [None]
  - Vaginal discharge [None]
  - Anxiety [None]
  - Insomnia [None]

NARRATIVE: CASE EVENT DATE: 20190914
